FAERS Safety Report 8016314-2 (Version None)
Quarter: 2011Q4

REPORT INFORMATION
  Report Type: 
  Country: None (occurrence: None)
  Receive Date: 20111230
  Receipt Date: 20111222
  Transmission Date: 20120403
  Serious: Yes (Hospitalization, Other)
  Sender: FDA-Public Use
  Company Number: US-MERCK-1110USA00187

PATIENT
  Age: 74 Year
  Sex: Female

DRUGS (3)
  1. VITAMIN D (UNSPECIFIED) [Concomitant]
     Route: 065
  2. FOSAMAX PLUS D [Suspect]
     Indication: OSTEOPOROSIS
     Route: 048
     Dates: start: 20010627, end: 20080807
  3. FOSAMAX [Suspect]
     Route: 048
     Dates: start: 20020501

REACTIONS (9)
  - ORAL SURGERY [None]
  - ADVERSE EVENT [None]
  - CARDIAC DISORDER [None]
  - OSTEOPOROSIS [None]
  - TOOTH DISORDER [None]
  - LIP AND/OR ORAL CAVITY CANCER [None]
  - BLOOD DISORDER [None]
  - OSTEONECROSIS OF JAW [None]
  - SKIN CANCER [None]
